FAERS Safety Report 24719241 (Version 1)
Quarter: 2024Q4

REPORT INFORMATION
  Report Type: Spontaneous
  Country: US (occurrence: None)
  Receive Date: 20241210
  Receipt Date: 20241210
  Transmission Date: 20250114
  Serious: No
  Sender: ALLEGIS PHARMACEUTICALS
  Company Number: US-Allegis Pharmaceuticals, LLC-APL202410-000103

PATIENT
  Age: 47 Year
  Sex: Male
  Weight: 113.3 kg

DRUGS (1)
  1. NITROGLYCERIN [Suspect]
     Active Substance: NITROGLYCERIN
     Indication: Cardiac disorder
     Dosage: UNKNOWN
     Route: 065

REACTIONS (2)
  - Underdose [Unknown]
  - Product container issue [Unknown]
